FAERS Safety Report 15588926 (Version 1)
Quarter: 2018Q4

REPORT INFORMATION
  Report Type: Report from Study
  Country: US (occurrence: US)
  Receive Date: 20181106
  Receipt Date: 20181106
  Transmission Date: 20190205
  Serious: Yes (Hospitalization, Other)
  Sender: FDA-Public Use
  Company Number: US-BRISTOL-MYERS SQUIBB COMPANY-BMS-2018-102306

PATIENT
  Age: 57 Year
  Sex: Male
  Weight: 72.6 kg

DRUGS (2)
  1. NIVOLUMAB [Suspect]
     Active Substance: NIVOLUMAB
     Indication: LYMPHOMA
     Dosage: 210 MG, UNK
     Route: 065
     Dates: start: 20181019, end: 20181019
  2. TALIMOGENE LAHERPAREPVEC [Suspect]
     Active Substance: TALIMOGENE LAHERPAREPVEC
     Indication: LYMPHOMA
     Dosage: 4 ML, UNK
     Route: 065
     Dates: start: 20180907, end: 20181015

REACTIONS (4)
  - Escherichia infection [Unknown]
  - Pain in extremity [Unknown]
  - Skin infection [Unknown]
  - Oedema peripheral [Unknown]

NARRATIVE: CASE EVENT DATE: 20180928
